FAERS Safety Report 17043263 (Version 1)
Quarter: 2019Q4

REPORT INFORMATION
  Report Type: Spontaneous
  Country: US (occurrence: US)
  Receive Date: 20191118
  Receipt Date: 20191118
  Transmission Date: 20200122
  Serious: Yes (Hospitalization)
  Sender: FDA-Public Use
  Company Number: US-JNJFOC-20191119922

PATIENT
  Sex: Female
  Weight: 52.21 kg

DRUGS (2)
  1. INVEGA SUSTENNA [Suspect]
     Active Substance: PALIPERIDONE PALMITATE
     Indication: PRODUCT USED FOR UNKNOWN INDICATION
     Dosage: ONE DOSE
     Route: 030
     Dates: start: 201809, end: 201809
  2. INVEGA [Suspect]
     Active Substance: PALIPERIDONE
     Indication: PRODUCT USED FOR UNKNOWN INDICATION
     Dosage: 2 OR 3 TIMES A DAY
     Route: 048
     Dates: start: 201809, end: 201812

REACTIONS (5)
  - Hospitalisation [Unknown]
  - Visual impairment [Not Recovered/Not Resolved]
  - Fracture pain [Not Recovered/Not Resolved]
  - Thinking abnormal [Unknown]
  - Skin exfoliation [Recovered/Resolved]

NARRATIVE: CASE EVENT DATE: 2018
